FAERS Safety Report 9383930 (Version 2)
Quarter: 2014Q1

REPORT INFORMATION
  Report Type: Spontaneous
  Country: US (occurrence: US)
  Receive Date: 20130705
  Receipt Date: 20140213
  Transmission Date: 20141002
  Serious: No
  Sender: FDA-Public Use
  Company Number: US-B.I. PHARMACEUTICALS,INC./RIDGEFIELD-2013-BI-18952BP

PATIENT
  Age: 40 Year
  Sex: Male
  Weight: 91 kg

DRUGS (3)
  1. COMBIVENT [Suspect]
     Indication: ASTHMA
     Dosage: STRENGTH: 20 MCG / 100 MCG; DAILY DOSE: 80 MCG/400 MCG
     Route: 055
     Dates: start: 20130611
  2. COMBIVENT CFC MDI [Concomitant]
     Indication: ASTHMA
     Dosage: STRENGTH: 18 MCG/103 MCG
     Route: 055
     Dates: start: 1996
  3. ALBUTEROL [Concomitant]
     Indication: ASTHMA
     Route: 055
     Dates: start: 2000

REACTIONS (2)
  - Underdose [Not Recovered/Not Resolved]
  - Product quality issue [Recovered/Resolved]
